FAERS Safety Report 5484388-9 (Version None)
Quarter: 2007Q4

REPORT INFORMATION
  Report Type: 
  Country: None (occurrence: None)
  Receive Date: 20071012
  Receipt Date: 20071009
  Transmission Date: 20080405
  Serious: Yes (Hospitalization)
  Sender: FDA-Public Use
  Company Number: US-MERCK-0710USA01273

PATIENT
  Age: 30 Year
  Sex: Female

DRUGS (3)
  1. VYTORIN [Suspect]
     Indication: BLOOD CHOLESTEROL INCREASED
     Route: 048
     Dates: start: 20060901
  2. PREMARIN [Suspect]
     Route: 065
     Dates: start: 20060901
  3. ENBREL [Concomitant]
     Indication: PSORIASIS
     Route: 051

REACTIONS (5)
  - CHEST PAIN [None]
  - CONVULSION [None]
  - HEADACHE [None]
  - MUSCLE SPASMS [None]
  - MYALGIA [None]
